FAERS Safety Report 6758086-5 (Version None)
Quarter: 2010Q2

REPORT INFORMATION
  Report Type: 
  Country: None (occurrence: None)
  Receive Date: 20100602
  Receipt Date: 20100512
  Transmission Date: 20101027
  Serious: Yes (Other)
  Sender: FDA-Public Use
  Company Number: 2010SCPR000694

PATIENT
  Age: 47 Year
  Sex: Male

DRUGS (10)
  1. VALPROIC ACID [Suspect]
     Indication: CONVULSION PROPHYLAXIS
  2. ALPRAZOLAM [Suspect]
     Indication: DRUG USE FOR UNKNOWN INDICATION
     Dosage: 4 MG DAILY
  3. OXYCONTIN [Concomitant]
  4. PERCOCET [Concomitant]
  5. BUPROPION HCL [Concomitant]
  6. OMEPRAZOLE [Concomitant]
  7. LISINOPRIL [Concomitant]
  8. INSULIN GLARGINE (INSULIN GLARGINE) [Concomitant]
  9. INSULIN LISPRO (INSULIN LISPRO) [Concomitant]
  10. BUPRENORPHINE W/NALOXONE (BUPRENORPHINE NALOXONE) [Concomitant]

REACTIONS (9)
  - ABDOMINAL DISTENSION [None]
  - AGITATION [None]
  - CONFUSIONAL STATE [None]
  - DYSARTHRIA [None]
  - DYSPEPSIA [None]
  - HAEMATEMESIS [None]
  - HYPERAMMONAEMIC ENCEPHALOPATHY [None]
  - OXYGEN SATURATION DECREASED [None]
  - REFUSAL OF TREATMENT BY PATIENT [None]
